FAERS Safety Report 5239330-2 (Version None)
Quarter: 2007Q1

REPORT INFORMATION
  Report Type: 
  Country: None (occurrence: None)
  Receive Date: 20070216
  Receipt Date: 20070207
  Transmission Date: 20070707
  Serious: Yes (Death, Other)
  Sender: FDA-Public Use
  Company Number: PHEH2007US00941

PATIENT
  Age: 80 Year
  Sex: Male

DRUGS (6)
  1. EXJADE [Suspect]
     Indication: SERUM FERRITIN INCREASED
     Dosage: 1250 MG, QD
     Route: 048
     Dates: start: 20061221, end: 20070116
  2. EXJADE [Suspect]
     Dosage: 250 MG, QD
     Route: 048
  3. EXJADE [Suspect]
     Dosage: 500 MG, QD
     Route: 048
  4. EXJADE [Suspect]
     Dosage: 750 MG, QD
     Route: 048
  5. EXJADE [Suspect]
     Dosage: 1000 MG, QD
     Route: 048
  6. DECITABINE [Concomitant]
     Indication: ACUTE MYELOID LEUKAEMIA
     Dates: start: 20070103, end: 20070107

REACTIONS (8)
  - ACUTE MYELOID LEUKAEMIA [None]
  - ALANINE AMINOTRANSFERASE INCREASED [None]
  - ASPARTATE AMINOTRANSFERASE INCREASED [None]
  - BLOOD ALKALINE PHOSPHATASE INCREASED [None]
  - BLOOD BILIRUBIN INCREASED [None]
  - DIARRHOEA [None]
  - LIVER FUNCTION TEST ABNORMAL [None]
  - SEPSIS [None]
